FAERS Safety Report 23055884 (Version 2)
Quarter: 2024Q1

REPORT INFORMATION
  Report Type: Spontaneous
  Country: CA (occurrence: CA)
  Receive Date: 20231011
  Receipt Date: 20240227
  Transmission Date: 20240410
  Serious: Yes (Disabling)
  Sender: FDA-Public Use
  Company Number: CA-ORGANON-O2310CAN001262

PATIENT
  Age: 31 Year
  Sex: Female

DRUGS (1)
  1. MOMETASONE FUROATE [Suspect]
     Active Substance: MOMETASONE FUROATE
     Indication: Eczema
     Dosage: UNK
     Route: 061
     Dates: start: 2003, end: 202004

REACTIONS (11)
  - Eczema [Not Recovered/Not Resolved]
  - Vasodilatation [Not Recovered/Not Resolved]
  - Epinephrine increased [Not Recovered/Not Resolved]
  - Amenorrhoea [Not Recovered/Not Resolved]
  - Photosensitivity reaction [Not Recovered/Not Resolved]
  - Illness [Not Recovered/Not Resolved]
  - Pain of skin [Not Recovered/Not Resolved]
  - Fatigue [Not Recovered/Not Resolved]
  - Skin atrophy [Not Recovered/Not Resolved]
  - Skin burning sensation [Not Recovered/Not Resolved]
  - Drug withdrawal syndrome [Not Recovered/Not Resolved]

NARRATIVE: CASE EVENT DATE: 20200101
